FAERS Safety Report 8763090 (Version 2)
Quarter: 2012Q4

REPORT INFORMATION
  Report Type: 
  Country: PL (occurrence: PL)
  Receive Date: 20120831
  Receipt Date: 20121011
  Transmission Date: 20130627
  Serious: Yes (Hospitalization, Other)
  Sender: FDA-Public Use
  Company Number: PHHY2012PL073745

PATIENT
  Age: 44 Year
  Sex: Male

DRUGS (6)
  1. CLOZAPINE [Suspect]
     Indication: SCHIZOPHRENIA, PARANOID TYPE
     Dosage: 500 mg/day
     Route: 048
  2. CLOZAPINE [Suspect]
     Dosage: 12.5 mg, Daily
  3. CLOZAPINE [Suspect]
     Dosage: 400 mg,Daily
  4. CLOZAPINE [Suspect]
     Dosage: 500 mg, Daily
  5. CLOZAPINE [Suspect]
     Dosage: 400 mg, daily
  6. HALOPERIDOL [Suspect]
     Dosage: 10 mg,/day
     Route: 048

REACTIONS (32)
  - Acute respiratory failure [Recovered/Resolved]
  - Respiratory tract infection bacterial [Recovered/Resolved]
  - White blood cell count increased [Recovered/Resolved]
  - Urinary tract infection bacterial [Recovered/Resolved]
  - Skin ulcer [Recovered/Resolved]
  - Oral candidiasis [Recovered/Resolved]
  - Nuclear magnetic resonance imaging brain abnormal [Recovered/Resolved]
  - Neuroleptic malignant syndrome [Recovered/Resolved]
  - Pyrexia [Recovered/Resolved]
  - Body temperature increased [Recovered/Resolved]
  - Muscle rigidity [Recovered/Resolved]
  - Tremor [Recovered/Resolved]
  - Mutism [Recovered/Resolved]
  - Tachycardia [Recovered/Resolved]
  - Hyperhidrosis [Recovered/Resolved]
  - Muscle contracture [Recovered/Resolved]
  - Blood creatine phosphokinase increased [Recovered/Resolved]
  - Schizophrenia [Recovered/Resolved]
  - Aggression [Recovered/Resolved]
  - Agitation [Recovered/Resolved]
  - Persecutory delusion [Recovered/Resolved]
  - Delusion [Recovered/Resolved]
  - Hallucination, auditory [Recovered/Resolved]
  - Psychotic disorder [Recovered/Resolved]
  - Psychomotor hyperactivity [Recovered/Resolved]
  - Mental impairment [Recovered/Resolved]
  - Catatonia [Recovered/Resolved]
  - Salivary hypersecretion [Recovered/Resolved]
  - C-reactive protein increased [Unknown]
  - Anaemia [Unknown]
  - Insomnia [Recovered/Resolved]
  - Hypokalaemia [Recovered/Resolved]
